FAERS Safety Report 10022363 (Version 2)
Quarter: 2014Q2

REPORT INFORMATION
  Report Type: Spontaneous
  Country: US (occurrence: US)
  Receive Date: 20140319
  Receipt Date: 20140512
  Transmission Date: 20141212
  Serious: No
  Sender: FDA-Public Use
  Company Number: US-009507513-1403USA008599

PATIENT
  Sex: Female
  Weight: 72.56 kg

DRUGS (5)
  1. OXYTROL FOR WOMEN [Suspect]
     Indication: HYPERTONIC BLADDER
     Dosage: 1 DF, Q4D
     Route: 062
     Dates: start: 20140118, end: 20140317
  2. ALPHAGAN [Concomitant]
     Indication: GLAUCOMA
     Dosage: UNK, UNKNOWN
  3. ALLERGAN [Concomitant]
     Indication: GLAUCOMA
     Dosage: UNK, UNKNOWN
  4. OMEPRAZOLE [Concomitant]
     Indication: GASTROOESOPHAGEAL REFLUX DISEASE
     Dosage: UNK, UNKNOWN
  5. OMEPRAZOLE [Concomitant]
     Indication: GASTROOESOPHAGEAL REFLUX DISEASE

REACTIONS (8)
  - Visual impairment [Unknown]
  - Dry mouth [Unknown]
  - Dry eye [Unknown]
  - Application site erythema [Recovering/Resolving]
  - Pruritus [Unknown]
  - Drug administered at inappropriate site [Unknown]
  - Off label use [Unknown]
  - Product adhesion issue [Unknown]
